FAERS Safety Report 20483023 (Version 3)
Quarter: 2023Q1

REPORT INFORMATION
  Report Type: Report from Study
  Country: BR (occurrence: BR)
  Receive Date: 20220217
  Receipt Date: 20230208
  Transmission Date: 20230418
  Serious: Yes (Hospitalization, Other)
  Sender: FDA-Public Use
  Company Number: BR-JNJFOC-20220222798

PATIENT
  Age: 7 Decade
  Sex: Female
  Weight: 61 kg

DRUGS (2)
  1. INFLIXIMAB [Suspect]
     Active Substance: INFLIXIMAB
     Indication: Psoriatic arthropathy
     Route: 041
     Dates: end: 202106
  2. INFLIXIMAB [Suspect]
     Active Substance: INFLIXIMAB
     Route: 041

REACTIONS (6)
  - Hospitalisation [Unknown]
  - COVID-19 [Unknown]
  - Psoriasis [Not Recovered/Not Resolved]
  - Poor quality sleep [Unknown]
  - Inadequate diet [Unknown]
  - General physical health deterioration [Unknown]

NARRATIVE: CASE EVENT DATE: 20200101
